FAERS Safety Report 10434160 (Version 1)
Quarter: 2014Q3

REPORT INFORMATION
  Report Type: Spontaneous
  Country: GB (occurrence: GB)
  Receive Date: 20140905
  Receipt Date: 20140905
  Transmission Date: 20150326
  Serious: Yes (Life-Threatening)
  Sender: FDA-Public Use
  Company Number: GB-WATSON-2014-19192

PATIENT
  Age: 63 Year
  Sex: Male
  Weight: 76 kg

DRUGS (3)
  1. ATRACURIUM (UNKNOWN) [Suspect]
     Active Substance: ATRACURIUM
     Indication: ANAESTHESIA
     Dosage: 40 MG, UNKNOWN
     Route: 042
     Dates: start: 20140721, end: 20140721
  2. AMOXICILLIN. [Suspect]
     Active Substance: AMOXICILLIN
     Indication: PROPHYLAXIS
     Dosage: 1 G, UNKNOWN
     Route: 042
     Dates: start: 20140721, end: 20140721
  3. MORPHINE (UNKNOWN) [Suspect]
     Active Substance: MORPHINE
     Indication: PAIN PROPHYLAXIS
     Dosage: 5 MG, UNKNOWN
     Route: 042
     Dates: start: 20140721, end: 20140721

REACTIONS (1)
  - Anaphylactic reaction [Recovered/Resolved]

NARRATIVE: CASE EVENT DATE: 20140721
